FAERS Safety Report 5094640-7 (Version None)
Quarter: 2006Q3

REPORT INFORMATION
  Report Type: 
  Country: None (occurrence: None)
  Receive Date: 20060831
  Receipt Date: 20060713
  Transmission Date: 20061208
  Serious: Yes (Other)
  Sender: FDA-Public Use
  Company Number: US-MERCK-0607USA02566

PATIENT
  Sex: Female
  Weight: 81 kg

DRUGS (12)
  1. FOSAMAX [Suspect]
     Indication: OSTEOPOROSIS
     Route: 048
     Dates: start: 20000101, end: 20040701
  2. ZOCOR [Concomitant]
     Route: 065
  3. HYDROCHLOROTHIAZIDE [Concomitant]
     Route: 065
  4. TOPROL-XL [Concomitant]
     Route: 065
  5. DARVOCET [Concomitant]
     Route: 065
  6. CALTRATE + VIT D [Concomitant]
     Route: 065
  7. COZAAR [Concomitant]
     Route: 065
  8. MAXIVISION EYE FORMULA [Concomitant]
     Route: 065
  9. AMITRIPTYLINE HYDROCHLORIDE [Concomitant]
     Route: 065
  10. GAVISCON ANTACID TABLETS [Concomitant]
     Route: 065
  11. NEURONTIN [Concomitant]
     Route: 065
  12. [THERAPY UNSPECIFIED] [Concomitant]
     Route: 065

REACTIONS (3)
  - CONSTIPATION [None]
  - TOOTH INFECTION [None]
  - TOOTH LOSS [None]
